FAERS Safety Report 12962495 (Version 2)
Quarter: 2016Q4

REPORT INFORMATION
  Report Type: Report from Study
  Country: NG (occurrence: NG)
  Receive Date: 20161121
  Receipt Date: 20161123
  Transmission Date: 20170207
  Serious: Yes (Death, Other)
  Sender: FDA-Public Use
  Company Number: NG-GILEAD-2016-0243617

PATIENT
  Age: 40 Year
  Sex: Male
  Weight: 72 kg

DRUGS (2)
  1. BROMAZEPAM [Concomitant]
     Active Substance: BROMAZEPAM
  2. EFAVIRENZ/EMTRICITABINE/TENOFOVIR DISOPROXIL FUMARATE [Suspect]
     Active Substance: EFAVIRENZ\EMTRICITABINE\TENOFOVIR DISOPROXIL FUMARATE
     Indication: HIV INFECTION
     Dosage: 1 DF, QD
     Route: 048
     Dates: start: 20130307, end: 20160718

REACTIONS (3)
  - Myocardial infarction [Fatal]
  - Cerebrovascular accident [Fatal]
  - Hypertensive heart disease [Fatal]
